FAERS Safety Report 7569297-3 (Version None)
Quarter: 2011Q2

REPORT INFORMATION
  Report Type: 
  Country: None (occurrence: None)
  Receive Date: 20110623
  Receipt Date: 20110617
  Transmission Date: 20111010
  Serious: Yes (Other)
  Sender: FDA-Public Use
  Company Number: GB-PFIZER INC-2011056557

PATIENT
  Age: 42 Year
  Sex: Male

DRUGS (1)
  1. EFFEXOR XR [Suspect]
     Dosage: UNK
     Dates: start: 20110208

REACTIONS (3)
  - HEPATITIS C [None]
  - TRANSAMINASES INCREASED [None]
  - JAUNDICE [None]
